FAERS Safety Report 9282927 (Version 1)
Quarter: 2013Q2

REPORT INFORMATION
  Report Type: Spontaneous
  Country: US (occurrence: US)
  Receive Date: 20130510
  Receipt Date: 20130510
  Transmission Date: 20140414
  Serious: Yes (Death, Hospitalization)
  Sender: FDA-Public Use
  Company Number: PHHY2013US045883

PATIENT
  Age: 52 Year
  Sex: Male

DRUGS (4)
  1. PREDNISONE [Suspect]
     Indication: IMMUNOSUPPRESSION
  2. TACROLIMUS [Suspect]
     Indication: IMMUNOSUPPRESSION
  3. MYCOPHENOLATE MOFETIL [Suspect]
     Indication: IMMUNOSUPPRESSION
  4. VORICONAZOLE [Suspect]

REACTIONS (11)
  - Multi-organ failure [Fatal]
  - Cardiogenic shock [Unknown]
  - Bronchopulmonary aspergillosis [Unknown]
  - Cough [Unknown]
  - Lung infiltration [Unknown]
  - Lower respiratory tract inflammation [Unknown]
  - Lung abscess [Unknown]
  - Haemoptysis [Unknown]
  - Aspergilloma [Unknown]
  - Pneumonia necrotising [Unknown]
  - Zygomycosis [Unknown]
